FAERS Safety Report 17839813 (Version 1)
Quarter: 2020Q2

REPORT INFORMATION
  Report Type: Spontaneous
  Country: JP (occurrence: JP)
  Receive Date: 20200529
  Receipt Date: 20200529
  Transmission Date: 20200714
  Serious: Yes (Other)
  Sender: FDA-Public Use
  Company Number: NVSJ2020JP005369

PATIENT
  Sex: Female

DRUGS (1)
  1. TEGRETOL [Suspect]
     Active Substance: CARBAMAZEPINE
     Indication: EPILEPSY
     Dosage: 400 MG
     Route: 048

REACTIONS (5)
  - Renal impairment [Unknown]
  - C-reactive protein increased [Unknown]
  - Rhabdomyolysis [Unknown]
  - Hepatic enzyme increased [Unknown]
  - Blood creatine phosphokinase increased [Unknown]
